FAERS Safety Report 6649303-0 (Version None)
Quarter: 2010Q1

REPORT INFORMATION
  Report Type: 
  Country: None (occurrence: None)
  Receive Date: 20100324
  Receipt Date: 20100316
  Transmission Date: 20100710
  Serious: Yes (Death, Hospitalization)
  Sender: FDA-Public Use
  Company Number: DE-CEPHALON-2009005999

PATIENT
  Sex: Male

DRUGS (3)
  1. TREANDA [Suspect]
     Indication: NON-HODGKIN'S LYMPHOMA
     Dates: start: 20090201, end: 20090401
  2. TREANDA [Suspect]
     Indication: ONCOLOGIC COMPLICATION
  3. RITUXIMAB [Concomitant]

REACTIONS (2)
  - DEATH [None]
  - ENCEPHALOPATHY [None]
